FAERS Safety Report 10040717 (Version 2)
Quarter: 2014Q2

REPORT INFORMATION
  Report Type: Spontaneous
  Country: US (occurrence: US)
  Receive Date: 20140327
  Receipt Date: 20140513
  Transmission Date: 20141212
  Serious: No
  Sender: FDA-Public Use
  Company Number: US-009507513-1403USA006596

PATIENT
  Sex: Female
  Weight: 81.63 kg

DRUGS (4)
  1. OXYTROL FOR WOMEN [Suspect]
     Indication: INCONTINENCE
     Dosage: 1 DF, Q4D
     Route: 062
     Dates: end: 201402
  2. ZOLOFT [Concomitant]
     Indication: ANXIETY
     Dosage: UNK, UNKNOWN
  3. BUPROPION HYDROCHLORIDE [Concomitant]
     Indication: ANXIETY
     Dosage: UNK, UNKNOWN
  4. XANAX [Concomitant]
     Indication: ANXIETY
     Dosage: UNK, UNKNOWN

REACTIONS (4)
  - Application site pain [Recovered/Resolved]
  - Burning sensation [Recovered/Resolved]
  - Erythema [Recovered/Resolved]
  - Product adhesion issue [Unknown]
